FAERS Safety Report 10600824 (Version 1)
Quarter: 2014Q4

REPORT INFORMATION
  Report Type: Spontaneous
  Country: US (occurrence: None)
  Receive Date: 20141121
  Receipt Date: 20141121
  Transmission Date: 20150529
  Serious: Yes (Hospitalization, Disabling, Other)
  Sender: FDA-Public Use
  Company Number: None

PATIENT
  Age: 49 Year
  Sex: Male
  Weight: 65.77 kg

DRUGS (1)
  1. CHANTIX [Suspect]
     Active Substance: VARENICLINE TARTRATE
     Indication: SMOKING CESSATION THERAPY
     Dosage: UP TO 2 PILLS/DAY
     Route: 048
     Dates: start: 20141030, end: 20141110

REACTIONS (2)
  - Intracranial aneurysm [None]
  - Hypertension [None]

NARRATIVE: CASE EVENT DATE: 20141111
